FAERS Safety Report 4581313-X (Version None)
Quarter: 2005Q1

REPORT INFORMATION
  Report Type: 
  Country: None (occurrence: None)
  Receive Date: 20050214
  Receipt Date: 20040922
  Transmission Date: 20050727
  Serious: No
  Sender: FDA-Public Use
  Company Number: US-GLAXOSMITHKLINE-A0527278A

PATIENT
  Age: 58 Year
  Sex: Female

DRUGS (11)
  1. LAMICTAL [Suspect]
     Indication: HEADACHE
     Dosage: 25MG THREE TIMES PER DAY
     Route: 048
     Dates: start: 20040628, end: 20040912
  2. ULTRAM [Concomitant]
  3. CLONAZEPAM [Concomitant]
  4. SYNTHROID [Concomitant]
  5. TOPAMAX [Concomitant]
  6. FLONASE [Concomitant]
  7. ACIPHEX [Concomitant]
  8. ESTRADERM [Concomitant]
  9. ZYRTEC [Concomitant]
  10. CALCIUM GLUCONATE [Concomitant]
  11. ATACAND [Concomitant]

REACTIONS (1)
  - RASH [None]
